FAERS Safety Report 21928939 (Version 2)
Quarter: 2023Q1

REPORT INFORMATION
  Report Type: Report from Study
  Country: AR (occurrence: AR)
  Receive Date: 20230131
  Receipt Date: 20230208
  Transmission Date: 20230418
  Serious: Yes (Hospitalization, Other)
  Sender: FDA-Public Use
  Company Number: AR-ABBVIE-4288426

PATIENT
  Age: 70 Year
  Sex: Female

DRUGS (1)
  1. RINVOQ [Suspect]
     Active Substance: UPADACITINIB
     Indication: Psoriatic arthropathy
     Dosage: 15 MILLIGRAM
     Route: 048
     Dates: start: 20220305

REACTIONS (4)
  - Cholelithiasis [Recovered/Resolved]
  - Cholecystitis infective [Recovered/Resolved]
  - Cholecystectomy [Unknown]
  - Abdominal pain [Recovering/Resolving]

NARRATIVE: CASE EVENT DATE: 20230123
